FAERS Safety Report 5237423-7 (Version None)
Quarter: 2007Q1

REPORT INFORMATION
  Report Type: 
  Country: None (occurrence: None)
  Receive Date: 20070213
  Receipt Date: 20070205
  Transmission Date: 20070707
  Serious: Yes (Hospitalization, Disabling)
  Sender: FDA-Public Use
  Company Number: NO-ABBOTT-07P-122-0358417-00

PATIENT
  Sex: Female

DRUGS (5)
  1. HUMIRA [Suspect]
     Indication: RHEUMATOID ARTHRITIS
     Route: 058
     Dates: start: 20050901, end: 20061101
  2. METOCLOPRAMIDE [Concomitant]
     Indication: NAUSEA
     Dates: start: 20050721
  3. METHOTREXATE [Concomitant]
     Indication: RHEUMATOID ARTHRITIS
     Dates: start: 20050721
  4. ALENDRONATE SODIUM [Concomitant]
     Indication: OSTEOPOROSIS
     Dates: start: 20021205
  5. CALCIUM WITH VITAMIN D [Concomitant]
     Indication: OSTEOPOROSIS
     Dosage: 500 MILLIGRAM+10 MICROGRAM DAILY
     Dates: start: 20021205

REACTIONS (3)
  - CEREBRAL INFARCTION [None]
  - PERONEAL NERVE PALSY [None]
  - POLYNEUROPATHY [None]
